FAERS Safety Report 6294364-4 (Version None)
Quarter: 2009Q3

REPORT INFORMATION
  Report Type: 
  Country: None (occurrence: None)
  Receive Date: 20090803
  Receipt Date: 20090626
  Transmission Date: 20100115
  Serious: Yes (Hospitalization)
  Sender: FDA-Public Use
  Company Number: FR-PFIZER INC-2008080228

PATIENT
  Age: 61 Year

DRUGS (7)
  1. SUNITINIB MALATE [Suspect]
     Indication: LUNG CANCER METASTATIC
     Dosage: 50 MG, 1X/DAY
     Dates: start: 20080709, end: 20080917
  2. FONDAPARINUX SODIUM [Concomitant]
     Route: 058
     Dates: start: 20080723
  3. SOLUPRED [Concomitant]
     Route: 048
     Dates: start: 20070526
  4. ESOMEPRAZOLE MAGNESIUM [Concomitant]
     Route: 048
     Dates: start: 20070503
  5. METOCLOPRAMIDE [Concomitant]
     Route: 048
     Dates: start: 20080819
  6. CLINOMEL [Concomitant]
     Route: 051
     Dates: start: 20080908, end: 20080923
  7. FUNGIZONE [Concomitant]
     Route: 048
     Dates: start: 20080917, end: 20080923

REACTIONS (5)
  - DYSPHAGIA [None]
  - GENERAL PHYSICAL CONDITION ABNORMAL [None]
  - JAUNDICE [None]
  - ORAL PAIN [None]
  - VOMITING [None]
